FAERS Safety Report 6147913-0 (Version None)
Quarter: 2009Q2

REPORT INFORMATION
  Report Type: 
  Country: None (occurrence: None)
  Receive Date: 20090403
  Receipt Date: 20090327
  Transmission Date: 20091009
  Serious: Yes (Other)
  Sender: FDA-Public Use
  Company Number: ADR1072009

PATIENT
  Age: 70 Year
  Sex: Female

DRUGS (1)
  1. ALENDRON BETA EINMAL WOCHENTLICH 70 MG TABLETTEN (ALENDRONIC ACID) [Suspect]
     Indication: OSTEOPOROSIS
     Dosage: 70 MG ONCE WEEKLY, ORAL
     Route: 048
     Dates: start: 20090220, end: 20090323

REACTIONS (2)
  - ALOPECIA AREATA [None]
  - DYSPEPSIA [None]
